FAERS Safety Report 6298487-5 (Version None)
Quarter: 2009Q3

REPORT INFORMATION
  Report Type: 
  Country: None (occurrence: None)
  Receive Date: 20090805
  Receipt Date: 20090731
  Transmission Date: 20100115
  Serious: Yes (Life-Threatening, Hospitalization)
  Sender: FDA-Public Use
  Company Number: US-GILEAD-2009-0023109

PATIENT
  Sex: Female

DRUGS (6)
  1. EMTRIVA [Suspect]
     Indication: HIV INFECTION
     Route: 048
     Dates: start: 20060817
  2. DIDANOSINE [Suspect]
     Route: 048
     Dates: start: 20060817
  3. LOPINAVIR AND RITONAVIR [Suspect]
     Route: 048
     Dates: start: 20060817
  4. VALPROIC ACID [Concomitant]
  5. METOPROLOL SUCCINATE [Concomitant]
  6. AMITRIPTYLINE HCL [Concomitant]

REACTIONS (2)
  - BLOOD CREATININE INCREASED [None]
  - PNEUMONIA [None]
